FAERS Safety Report 13834031 (Version 1)
Quarter: 2017Q3

REPORT INFORMATION
  Report Type: Spontaneous
  Country: GB (occurrence: GB)
  Receive Date: 20170804
  Receipt Date: 20170804
  Transmission Date: 20171127
  Serious: Yes (Other)
  Sender: FDA-Public Use
  Company Number: GB-ABBVIE-17P-167-2056537-00

PATIENT
  Sex: Male

DRUGS (3)
  1. VIEKIRAX [Suspect]
     Active Substance: OMBITASVIR\PARITAPREVIR\RITONAVIR
     Indication: HEPATITIS C
     Route: 048
     Dates: start: 201701, end: 201704
  2. RIBAVIRIN. [Suspect]
     Active Substance: RIBAVIRIN
     Indication: HEPATITIS C
     Route: 048
  3. EXVIERA [Suspect]
     Active Substance: DASABUVIR
     Indication: HEPATITIS C
     Route: 048
     Dates: start: 201701, end: 201704

REACTIONS (7)
  - Abdominal pain [Unknown]
  - Hepatic steatosis [Unknown]
  - Treatment failure [Unknown]
  - Fibrosis [Unknown]
  - Type 1 diabetes mellitus [Unknown]
  - Hepatic cirrhosis [Unknown]
  - Gallbladder polyp [Unknown]
